FAERS Safety Report 4963625-0 (Version None)
Quarter: 2006Q1

REPORT INFORMATION
  Report Type: 
  Country: None (occurrence: None)
  Receive Date: 20060201
  Receipt Date: 20051121
  Transmission Date: 20060701
  Serious: No
  Sender: FDA-Public Use
  Company Number: 2005PV004674

PATIENT
  Age: 67 Year
  Sex: Female
  Weight: 94.3482 kg

DRUGS (6)
  1. BYETTA [Suspect]
     Indication: DIABETES MELLITUS NON-INSULIN-DEPENDENT
     Dosage: 5 MCG; BID; SC
     Route: 058
     Dates: start: 20050701
  2. NOVOLOG [Concomitant]
  3. HUMALOG [Concomitant]
  4. GLUCOPHAGE [Concomitant]
  5. LASIX [Concomitant]
  6. NEURONTIN [Concomitant]

REACTIONS (5)
  - DECREASED APPETITE [None]
  - DYSGEUSIA [None]
  - NASOPHARYNGITIS [None]
  - NAUSEA [None]
  - WEIGHT DECREASED [None]
